FAERS Safety Report 13247791 (Version 1)
Quarter: 2017Q1

REPORT INFORMATION
  Report Type: Spontaneous
  Country: US (occurrence: US)
  Receive Date: 20170217
  Receipt Date: 20170217
  Transmission Date: 20170428
  Serious: Yes (Other)
  Sender: FDA-Public Use
  Company Number: US-ELI_LILLY_AND_COMPANY-US201608003584

PATIENT
  Sex: Female

DRUGS (4)
  1. CYMBALTA [Suspect]
     Active Substance: DULOXETINE HYDROCHLORIDE
     Indication: NEURALGIA
     Dosage: 60 MG, QD
     Route: 048
     Dates: start: 20100730
  2. CYMBALTA [Suspect]
     Active Substance: DULOXETINE HYDROCHLORIDE
     Dosage: 30 MG, QD
     Route: 048
  3. CYMBALTA [Suspect]
     Active Substance: DULOXETINE HYDROCHLORIDE
     Dosage: 30 MG, QOD
     Route: 048
  4. CYMBALTA [Suspect]
     Active Substance: DULOXETINE HYDROCHLORIDE
     Dosage: 30 MG, 3/W, M,W,F
     Route: 048

REACTIONS (12)
  - Drug withdrawal syndrome [Unknown]
  - Anxiety [Unknown]
  - Agitation [Unknown]
  - Confusional state [Unknown]
  - Affect lability [Unknown]
  - Irritability [Unknown]
  - Suicidal ideation [Unknown]
  - Fatigue [Unknown]
  - Dysphoria [Unknown]
  - Dizziness [Unknown]
  - Tinnitus [Unknown]
  - Paraesthesia [Unknown]
